FAERS Safety Report 4728499-1 (Version None)
Quarter: 2005Q3

REPORT INFORMATION
  Report Type: 
  Country: None (occurrence: None)
  Receive Date: 20050729
  Receipt Date: 20041111
  Transmission Date: 20060218
  Serious: No
  Sender: FDA-Public Use
  Company Number: US-GLAXOSMITHKLINE-A0533829A

PATIENT
  Age: 83 Year
  Sex: Female

DRUGS (6)
  1. ZANTAC [Suspect]
     Indication: DRUG USE FOR UNKNOWN INDICATION
     Dosage: 150MG TWICE PER DAY
     Route: 048
  2. XANAX [Concomitant]
  3. CITRUCEL [Concomitant]
  4. PERCOCET [Concomitant]
     Dosage: 15MG IN THE MORNING
  5. NERVE MEDICATION [Concomitant]
  6. KEFLEX [Concomitant]
     Dosage: 500MG VARIABLE DOSE

REACTIONS (2)
  - SKIN ODOUR ABNORMAL [None]
  - WEIGHT DECREASED [None]
